FAERS Safety Report 5717325-X (Version None)
Quarter: 2008Q2

REPORT INFORMATION
  Report Type: 
  Country: None (occurrence: None)
  Receive Date: 20080424
  Receipt Date: 20080424
  Transmission Date: 20081010
  Serious: Yes (Other)
  Sender: FDA-Public Use
  Company Number: None

PATIENT

DRUGS (1)
  1. MONO-NESSA 0.25/ .035 MG WATSON [Suspect]
     Indication: ORAL CONTRACEPTION
     Dosage: 1 TABLET QD PO
     Route: 048
     Dates: start: 20080301, end: 20080401

REACTIONS (3)
  - NAUSEA [None]
  - PHARMACEUTICAL PRODUCT COMPLAINT [None]
  - VOMITING [None]
